FAERS Safety Report 5048741-X (Version None)
Quarter: 2006Q3

REPORT INFORMATION
  Report Type: 
  Country: None (occurrence: None)
  Receive Date: 20060705
  Receipt Date: 20060614
  Transmission Date: 20061208
  Serious: Yes (Death, Other)
  Sender: FDA-Public Use
  Company Number: ES200606001039

PATIENT
  Age: 71 Year
  Sex: Male

DRUGS (7)
  1. ZYPREXA [Suspect]
     Dosage: SEE IMAGE, ORAL
     Route: 048
     Dates: start: 20050201, end: 20050201
  2. ZYPREXA [Suspect]
     Dosage: SEE IMAGE, ORAL
     Route: 048
     Dates: start: 20050201, end: 20051001
  3. ZYPREXA [Suspect]
     Dosage: SEE IMAGE, ORAL
     Route: 048
     Dates: start: 20051001, end: 20051125
  4. AKINETON [Concomitant]
  5. HALOPERIDOL [Concomitant]
  6. RISPERIDONE [Concomitant]
  7. ETUMINA (CLOTIAPINE) [Concomitant]

REACTIONS (6)
  - BRONCHOSPASM [None]
  - CONDITION AGGRAVATED [None]
  - HUNGER [None]
  - MYOCARDIAL INFARCTION [None]
  - SCHIZOPHRENIA [None]
  - WEIGHT INCREASED [None]
